FAERS Safety Report 17935420 (Version 4)
Quarter: 2020Q4

REPORT INFORMATION
  Report Type: Spontaneous
  Country: US (occurrence: US)
  Receive Date: 20200624
  Receipt Date: 20201006
  Transmission Date: 20210113
  Serious: Yes (Other)
  Sender: FDA-Public Use
  Company Number: US-JNJFOC-20200620340

PATIENT
  Age: 59 Year
  Sex: Male

DRUGS (7)
  1. REMICADE [Suspect]
     Active Substance: INFLIXIMAB
     Route: 042
     Dates: start: 20100729
  2. REMICADE [Suspect]
     Active Substance: INFLIXIMAB
     Route: 042
     Dates: start: 20100701
  3. REMICADE [Suspect]
     Active Substance: INFLIXIMAB
     Route: 042
     Dates: start: 20100923, end: 2011
  4. IRON [Concomitant]
     Active Substance: IRON
  5. PREDNISONE. [Concomitant]
     Active Substance: PREDNISONE
     Dosage: WHICH WAS BEING TAPERED
  6. APRISO [Concomitant]
     Active Substance: MESALAMINE
  7. REMICADE [Suspect]
     Active Substance: INFLIXIMAB
     Indication: COLITIS ULCERATIVE
     Route: 042
     Dates: start: 20100616

REACTIONS (1)
  - Parathyroid tumour malignant [Unknown]
